FAERS Safety Report 4754296-7 (Version None)
Quarter: 2005Q3

REPORT INFORMATION
  Report Type: 
  Country: None (occurrence: None)
  Receive Date: 20050829
  Receipt Date: 20050816
  Transmission Date: 20060218
  Serious: Yes (Other)
  Sender: FDA-Public Use
  Company Number: PHBS2005BR11970

PATIENT
  Age: 69 Year
  Sex: Female
  Weight: 51 kg

DRUGS (3)
  1. FORASEQ [Suspect]
     Indication: ASTHMA
     Dosage: 1 DF, QD
     Dates: start: 20030101
  2. LOSARTAN POTASSIUM [Concomitant]
     Indication: HYPERTENSION
     Dosage: 100 MG/DAY
     Route: 048
     Dates: start: 20040101
  3. NYSTATIN [Concomitant]
     Route: 048
     Dates: start: 20050201

REACTIONS (5)
  - COUGH [None]
  - DRY MOUTH [None]
  - OESOPHAGITIS [None]
  - ORAL CANDIDIASIS [None]
  - THROAT IRRITATION [None]
